FAERS Safety Report 15098732 (Version 2)
Quarter: 2018Q3

REPORT INFORMATION
  Report Type: Spontaneous
  Country: FR (occurrence: FR)
  Receive Date: 20180702
  Receipt Date: 20180711
  Transmission Date: 20181010
  Serious: Yes (Other)
  Sender: FDA-Public Use
  Company Number: FR-MYLANLABS-2018M1046709

PATIENT
  Age: 6 Day
  Sex: Female
  Weight: .71 kg

DRUGS (1)
  1. VANCOMYCIN MYLAN [Suspect]
     Active Substance: VANCOMYCIN
     Indication: SEPSIS
     Dosage: 80 MG, TOTAL
     Route: 042
     Dates: start: 20180109, end: 20180110

REACTIONS (3)
  - Renal failure [Not Recovered/Not Resolved]
  - Antibiotic level above therapeutic [Recovered/Resolved]
  - Accidental overdose [Recovered/Resolved]

NARRATIVE: CASE EVENT DATE: 20180109
